APPROVED DRUG PRODUCT: TOBRAMYCIN
Active Ingredient: TOBRAMYCIN
Strength: 300MG/5ML
Dosage Form/Route: SOLUTION;INHALATION
Application: A201422 | Product #001 | TE Code: AN
Applicant: HIKMA PHARMACEUTICALS USA INC
Approved: May 28, 2014 | RLD: No | RS: No | Type: RX